FAERS Safety Report 9732049 (Version 1)
Quarter: 2013Q4

REPORT INFORMATION
  Report Type: Spontaneous
  Country: US (occurrence: US)
  Receive Date: 20131205
  Receipt Date: 20131205
  Transmission Date: 20140711
  Serious: No
  Sender: FDA-Public Use
  Company Number: US-VERTEX PHARMACEUTICALS INC-2013-011575

PATIENT
  Age: 65 Year
  Sex: Female
  Weight: 76.19 kg

DRUGS (3)
  1. INCIVEK [Suspect]
     Indication: HEPATITIS C
     Dosage: 750 MG, TID
     Route: 048
     Dates: start: 201311
  2. RIBAVIRIN [Suspect]
     Indication: HEPATITIS C
     Dosage: 5 DF, QD (3TABS AM + 2TABS PM)
     Route: 048
     Dates: start: 201311
  3. PEGASYS [Suspect]
     Indication: HEPATITIS C
     Dosage: UNK
     Dates: start: 201311

REACTIONS (4)
  - Influenza like illness [Unknown]
  - Pain [Not Recovered/Not Resolved]
  - Discomfort [Unknown]
  - Fatigue [Not Recovered/Not Resolved]
